FAERS Safety Report 26094380 (Version 2)
Quarter: 2025Q4

REPORT INFORMATION
  Report Type: Spontaneous
  Country: EU (occurrence: EU)
  Receive Date: 20251126
  Receipt Date: 20251203
  Transmission Date: 20260118
  Serious: Yes (Other)
  Sender: Harrow Health
  Company Number: EU-Novartis Pharma-NVSC2025FR182119

PATIENT
  Age: 73 Year
  Sex: Male

DRUGS (3)
  1. MAXIDEX [Suspect]
     Active Substance: DEXAMETHASONE
     Indication: Transplant rejection
     Dosage: QD
     Route: 065
     Dates: start: 2019
  2. VERKAZIA [Suspect]
     Active Substance: CYCLOSPORINE
     Indication: Transplant rejection
     Dosage: UNK
     Route: 065
     Dates: start: 2019, end: 202506
  3. VEVYE [Suspect]
     Active Substance: CYCLOSPORINE
     Indication: Transplant rejection
     Route: 065
     Dates: start: 2019, end: 202506

REACTIONS (1)
  - Iatrogenic Kaposi sarcoma [Unknown]
